FAERS Safety Report 16002272 (Version 1)
Quarter: 2019Q1

REPORT INFORMATION
  Report Type: Spontaneous
  Country: US (occurrence: US)
  Receive Date: 20190225
  Receipt Date: 20190225
  Transmission Date: 20190418
  Serious: No
  Sender: FDA-Public Use
  Company Number: US-IGSA-SR10006793

PATIENT
  Age: 40 Year
  Sex: Female
  Weight: 47 kg

DRUGS (38)
  1. METFORMIN HCL [Concomitant]
     Active Substance: METFORMIN HYDROCHLORIDE
  2. MIRALAX [Concomitant]
     Active Substance: POLYETHYLENE GLYCOL 3350
  3. FLOVENT HFA [Concomitant]
     Active Substance: FLUTICASONE PROPIONATE
  4. VITAMIN E                          /00110501/ [Concomitant]
     Active Substance: TOCOPHEROL
  5. ASPIRIN. [Concomitant]
     Active Substance: ASPIRIN
  6. TAMIFLU [Concomitant]
     Active Substance: OSELTAMIVIR PHOSPHATE
  7. ANTIPYRINE/BENZOCAINE [Concomitant]
  8. VENTOLIN HFA [Concomitant]
     Active Substance: ALBUTEROL SULFATE
  9. CRANBERRY PLUS VITAMIN C [Concomitant]
  10. ADVIL (MEFENAMIC ACID) [Concomitant]
     Active Substance: MEFENAMIC ACID
  11. ESOMEPRAZOLE SODIUM. [Concomitant]
     Active Substance: ESOMEPRAZOLE SODIUM
  12. CYANOCOBALAMIN. [Concomitant]
     Active Substance: CYANOCOBALAMIN
  13. BUSPIRONE HCL [Concomitant]
     Active Substance: BUSPIRONE HYDROCHLORIDE
  14. POTASSIUM CHLORIDE. [Concomitant]
     Active Substance: POTASSIUM CHLORIDE
  15. MONTELUKAST SODIUM. [Concomitant]
     Active Substance: MONTELUKAST SODIUM
  16. PROLASTIN-C LIQUID [Suspect]
     Active Substance: .ALPHA.1-PROTEINASE INHIBITOR HUMAN
     Indication: ALPHA-1 ANTI-TRYPSIN DEFICIENCY
     Dosage: 2820 MG, Q.WK.
     Route: 042
     Dates: start: 20180810
  17. CROMOLYN SODIUM. [Concomitant]
     Active Substance: CROMOLYN SODIUM
  18. DICYCLOMINE HCL [Concomitant]
     Active Substance: DICYCLOMINE HYDROCHLORIDE
  19. LASIX [Concomitant]
     Active Substance: FUROSEMIDE
  20. ESTRADIOL. [Concomitant]
     Active Substance: ESTRADIOL
  21. GARLIC                             /01570501/ [Concomitant]
     Active Substance: GARLIC
  22. PROBIOTIC                          /06395501/ [Concomitant]
     Active Substance: BIFIDOBACTERIUM ANIMALIS LACTIS
  23. IPRATROPIUM/ALBUTEROL [Concomitant]
     Active Substance: ALBUTEROL\IPRATROPIUM
  24. ANORO ELLIPTA [Concomitant]
     Active Substance: UMECLIDINIUM BROMIDE\VILANTEROL TRIFENATATE
  25. CETIRIZINE HCL [Concomitant]
     Active Substance: CETIRIZINE HYDROCHLORIDE
  26. GAS-X MAX STRENGTH [Concomitant]
  27. PROLASTIN-C LIQUID [Suspect]
     Active Substance: .ALPHA.1-PROTEINASE INHIBITOR HUMAN
     Indication: EMPHYSEMA
  28. NITROGLYCERIN. [Concomitant]
     Active Substance: NITROGLYCERIN
  29. LAMOTRIGINE. [Concomitant]
     Active Substance: LAMOTRIGINE
  30. LEVETIRACETAM. [Concomitant]
     Active Substance: LEVETIRACETAM
  31. BENZONATATE. [Concomitant]
     Active Substance: BENZONATATE
  32. PYRIDOXINE HCL [Concomitant]
     Active Substance: PYRIDOXINE HYDROCHLORIDE
  33. OFLOXACIN. [Concomitant]
     Active Substance: OFLOXACIN
  34. ENSURE COMPACT [Concomitant]
  35. SALINE                             /00075401/ [Concomitant]
     Active Substance: SODIUM CHLORIDE
  36. VITAMIN D3 [Concomitant]
     Active Substance: CHOLECALCIFEROL
  37. FOLIC ACID. [Concomitant]
     Active Substance: FOLIC ACID
  38. FIBER [Concomitant]
     Active Substance: PSYLLIUM HUSK

REACTIONS (1)
  - Nausea [Recovered/Resolved]

NARRATIVE: CASE EVENT DATE: 20180811
